FAERS Safety Report 14101706 (Version 4)
Quarter: 2018Q2

REPORT INFORMATION
  Report Type: Report from Study
  Country: US (occurrence: US)
  Receive Date: 20171018
  Receipt Date: 20180607
  Transmission Date: 20180711
  Serious: Yes (Hospitalization)
  Sender: FDA-Public Use
  Company Number: PHHY2017US153162

PATIENT
  Age: 23 Year
  Sex: Male
  Weight: 81.3 kg

DRUGS (16)
  1. AZITHROMYCIN ANHYDROUS. [Concomitant]
     Active Substance: AZITHROMYCIN ANHYDROUS
     Indication: CYSTIC FIBROSIS LUNG
     Route: 065
  2. TOBI PODHALER [Suspect]
     Active Substance: TOBRAMYCIN
     Dosage: 300 OT, BID
     Route: 055
     Dates: start: 20170305, end: 20170401
  3. TOBI PODHALER [Suspect]
     Active Substance: TOBRAMYCIN
     Dosage: 300 OT, BID
     Route: 055
     Dates: start: 20170625, end: 20170722
  4. CHOLECALCIFEROL [Concomitant]
     Active Substance: CHOLECALCIFEROL
     Indication: NUTRITIONAL SUPPLEMENTATION
     Route: 065
  5. PULMOZYME [Concomitant]
     Active Substance: DORNASE ALFA
     Indication: CYSTIC FIBROSIS LUNG
     Route: 065
  6. SODIUM CHLORIDE. [Concomitant]
     Active Substance: SODIUM CHLORIDE
     Indication: CYSTIC FIBROSIS LUNG
  7. TOBI [Concomitant]
     Active Substance: TOBRAMYCIN
     Indication: CYSTIC FIBROSIS LUNG
     Dosage: UNK
     Route: 065
     Dates: start: 20170504
  8. TOBI PODHALER [Suspect]
     Active Substance: TOBRAMYCIN
     Indication: PSEUDOMONAS INFECTION
     Dosage: 300 OT, BID
     Route: 055
     Dates: start: 20170108, end: 20170204
  9. TOBI PODHALER [Suspect]
     Active Substance: TOBRAMYCIN
     Dosage: 300 OT, BID
     Route: 055
     Dates: start: 20170430, end: 20170527
  10. ADVAIR HFA [Concomitant]
     Active Substance: FLUTICASONE PROPIONATE\SALMETEROL XINAFOATE
     Indication: CYSTIC FIBROSIS LUNG
     Route: 065
  11. ADEKS [Concomitant]
     Indication: HYPOVITAMINOSIS
     Route: 065
  12. TOBI PODHALER [Suspect]
     Active Substance: TOBRAMYCIN
     Dosage: 300 OT, BID
     Route: 055
     Dates: start: 20170820, end: 20170916
  13. TOBI PODHALER [Suspect]
     Active Substance: TOBRAMYCIN
     Dosage: 300 OT, BID
     Route: 055
     Dates: start: 20171015, end: 20171111
  14. TOBI PODHALER [Suspect]
     Active Substance: TOBRAMYCIN
     Dosage: 300 OT, UNK
     Route: 055
     Dates: start: 20171210, end: 20180106
  15. TOBI PODHALER [Suspect]
     Active Substance: TOBRAMYCIN
     Indication: CYSTIC FIBROSIS
     Dosage: 1 DF (300MG/5ML), BID
     Route: 055
     Dates: start: 20131112
  16. ALBUTEROL. [Concomitant]
     Active Substance: ALBUTEROL
     Indication: CYSTIC FIBROSIS LUNG
     Route: 065

REACTIONS (7)
  - Gastrooesophageal reflux disease [Unknown]
  - Musculoskeletal pain [Unknown]
  - Anxiety [Unknown]
  - Malaise [Unknown]
  - Chest pain [Unknown]
  - Fatigue [Unknown]
  - Infective pulmonary exacerbation of cystic fibrosis [Recovered/Resolved]

NARRATIVE: CASE EVENT DATE: 20170117
